FAERS Safety Report 5698355-3 (Version None)
Quarter: 2008Q2

REPORT INFORMATION
  Report Type: 
  Country: None (occurrence: None)
  Receive Date: 20080408
  Receipt Date: 20080328
  Transmission Date: 20081010
  Serious: Yes (Hospitalization, Other)
  Sender: FDA-Public Use
  Company Number: BE-PFIZER INC-2008029085

PATIENT
  Sex: Female
  Weight: 45.5 kg

DRUGS (1)
  1. CHAMPIX [Suspect]
     Indication: SMOKING CESSATION THERAPY
     Route: 048
     Dates: start: 20080305, end: 20080312

REACTIONS (5)
  - ABDOMINAL DISTENSION [None]
  - FAECALOMA [None]
  - ILEUS [None]
  - ILEUS PARALYTIC [None]
  - PANCREATITIS [None]
